FAERS Safety Report 4869302-9 (Version None)
Quarter: 2005Q4

REPORT INFORMATION
  Report Type: 
  Country: None (occurrence: None)
  Receive Date: 20051230
  Receipt Date: 20051221
  Transmission Date: 20060501
  Serious: Yes (Hospitalization)
  Sender: FDA-Public Use
  Company Number: GB-JNJFOC-20051205774

PATIENT
  Age: 53 Year
  Sex: Male

DRUGS (5)
  1. TRAMADOL HYDROCHLORIDE [Suspect]
     Route: 065
  2. TRAMADOL HYDROCHLORIDE [Suspect]
     Indication: OSTEOARTHRITIS
     Route: 065
  3. MORPHINE [Suspect]
     Route: 051
  4. PARACETAMOL [Concomitant]
     Route: 065
  5. OMEPRAZOLE [Concomitant]
     Indication: PEPTIC ULCER
     Route: 065

REACTIONS (12)
  - DRUG WITHDRAWAL SYNDROME [None]
  - DYSKINESIA [None]
  - DYSPNOEA [None]
  - ELECTROCARDIOGRAM ST SEGMENT DEPRESSION [None]
  - EMOTIONAL DISTRESS [None]
  - HYPERHIDROSIS [None]
  - HYPERTONIA [None]
  - MUSCLE CONTRACTURE [None]
  - MUSCLE RIGIDITY [None]
  - RESPIRATORY ALKALOSIS [None]
  - TACHYCARDIA [None]
  - VASOCONSTRICTION [None]
